FAERS Safety Report 5976179-7 (Version None)
Quarter: 2008Q4

REPORT INFORMATION
  Report Type: 
  Country: None (occurrence: None)
  Receive Date: 20081202
  Receipt Date: 20081124
  Transmission Date: 20090506
  Serious: Yes (Hospitalization)
  Sender: FDA-Public Use
  Company Number: FR-AMGEN-US321485

PATIENT
  Sex: Female

DRUGS (3)
  1. ENBREL [Suspect]
     Indication: RHEUMATOID ARTHRITIS
     Dosage: UNKNOWN
     Route: 058
     Dates: start: 20080410, end: 20080515
  2. PYRAZINAMIDE [Suspect]
     Dates: start: 20080504
  3. RIFAMPICIN [Concomitant]
     Indication: TUBERCULIN TEST POSITIVE
     Dosage: UNKNOWN
     Route: 048
     Dates: start: 20080313, end: 20080519

REACTIONS (5)
  - ABDOMINAL PAIN [None]
  - CHILLS [None]
  - CYTOLYTIC HEPATITIS [None]
  - DIARRHOEA [None]
  - PYREXIA [None]
